FAERS Safety Report 6608494-8 (Version None)
Quarter: 2010Q1

REPORT INFORMATION
  Report Type: 
  Country: None (occurrence: None)
  Receive Date: 20100301
  Receipt Date: 20100216
  Transmission Date: 20100710
  Serious: Yes (Hospitalization)
  Sender: FDA-Public Use
  Company Number: US-MERCK-1002USA02319

PATIENT
  Sex: Female

DRUGS (2)
  1. ZOCOR [Suspect]
     Route: 048
  2. LIPITOR [Suspect]
     Route: 065

REACTIONS (6)
  - ADVERSE EVENT [None]
  - DEHYDRATION [None]
  - DIARRHOEA [None]
  - FATIGUE [None]
  - HEADACHE [None]
  - VOMITING [None]
